FAERS Safety Report 7100252-3 (Version None)
Quarter: 2010Q4

REPORT INFORMATION
  Report Type: 
  Country: None (occurrence: None)
  Receive Date: 20101112
  Receipt Date: 20101020
  Transmission Date: 20110411
  Serious: Yes (Hospitalization, Other)
  Sender: FDA-Public Use
  Company Number: CA-ABBOTT-10P-028-0668230-00

PATIENT
  Sex: Female
  Weight: 71.278 kg

DRUGS (10)
  1. HUMIRA [Suspect]
     Indication: RHEUMATOID ARTHRITIS
     Route: 058
     Dates: start: 20100428
  2. HUMIRA [Suspect]
     Dates: start: 20101020
  3. ELAVIL [Concomitant]
     Indication: PRODUCT USED FOR UNKNOWN INDICATION
     Dosage: QHS
     Route: 048
  4. EFFEXOR [Concomitant]
     Indication: PRODUCT USED FOR UNKNOWN INDICATION
     Dosage: QD
     Route: 048
  5. MONOCOR [Concomitant]
     Indication: HYPERTENSION
     Dosage: QD
     Route: 048
  6. DIOVAN [Concomitant]
     Indication: HYPERTENSION
     Dosage: QD
     Route: 048
  7. METHOTREXATE [Concomitant]
     Indication: ARTHRITIS
     Dosage: WEEKLY
  8. FOLIC ACID [Concomitant]
     Indication: PRODUCT USED FOR UNKNOWN INDICATION
     Dosage: 1 DAY/WEEK
     Route: 048
  9. CALCITE D [Concomitant]
     Indication: VITAMIN SUPPLEMENTATION
     Dosage: 500+400IU BID
  10. PANTOLOC [Concomitant]
     Indication: GASTRIC DISORDER
     Dosage: QD
     Route: 048

REACTIONS (4)
  - ARTHRALGIA [None]
  - BACK PAIN [None]
  - LOCALISED INFECTION [None]
  - PERIPHERAL ARTERIAL OCCLUSIVE DISEASE [None]
